FAERS Safety Report 5570018-4 (Version None)
Quarter: 2007Q4

REPORT INFORMATION
  Report Type: 
  Country: None (occurrence: None)
  Receive Date: 20071218
  Receipt Date: 20071206
  Transmission Date: 20080405
  Serious: Yes (Hospitalization)
  Sender: FDA-Public Use
  Company Number: GXKR2007DE10552

PATIENT
  Age: 39 Year
  Sex: Male

DRUGS (4)
  1. DIAZEPAM [Suspect]
     Dosage: 20 MG, QD
  2. PREGABALIN (PREGABALIN) [Concomitant]
  3. ALPRAZOLAM [Concomitant]
  4. ESCITALOPRAM OXALATE [Concomitant]

REACTIONS (15)
  - AGITATION [None]
  - CHILLS [None]
  - CONDITION AGGRAVATED [None]
  - DRUG WITHDRAWAL SYNDROME [None]
  - GASTROINTESTINAL DISORDER [None]
  - GENERALISED ANXIETY DISORDER [None]
  - HEADACHE [None]
  - HYPOAESTHESIA FACIAL [None]
  - INSOMNIA [None]
  - MOOD ALTERED [None]
  - MYALGIA [None]
  - PARAESTHESIA [None]
  - POOR QUALITY SLEEP [None]
  - SWOLLEN TONGUE [None]
  - TREMOR [None]
